APPROVED DRUG PRODUCT: BENZACLIN
Active Ingredient: BENZOYL PEROXIDE; CLINDAMYCIN PHOSPHATE
Strength: 5%;EQ 1% BASE
Dosage Form/Route: GEL;TOPICAL
Application: N050756 | Product #002
Applicant: BAUSCH HEALTH AMERICAS INC
Approved: Apr 20, 2007 | RLD: No | RS: No | Type: DISCN